FAERS Safety Report 16478512 (Version 4)
Quarter: 2019Q3

REPORT INFORMATION
  Report Type: Spontaneous
  Country: US (occurrence: US)
  Receive Date: 20190626
  Receipt Date: 20190814
  Transmission Date: 20191004
  Serious: No
  Sender: FDA-Public Use
  Company Number: US-PFIZER INC-2019271643

PATIENT
  Age: 79 Year
  Sex: Male

DRUGS (9)
  1. PREDNISONE. [Concomitant]
     Active Substance: PREDNISONE
     Dosage: 30 MG FOR 4 DAYS, THEN 20 MG FOR 2 DAYS, THEN 10 MG FOR 2 DAYS
     Dates: end: 20190710
  2. TAMULOSIN [Concomitant]
     Active Substance: TAMSULOSIN
     Dosage: UNK
  3. XELJANZ XR [Suspect]
     Active Substance: TOFACITINIB CITRATE
     Indication: PSORIATIC ARTHROPATHY
     Dosage: 0.5 DF, DAILY (1/2 PILL DAILY)
     Route: 048
     Dates: start: 20190703
  4. PREDNISONE. [Concomitant]
     Active Substance: PREDNISONE
     Dosage: 30 MG FOR 4 DAYS, THEN 20 MG FOR 2 DAYS, THEN 10 MG FOR 2 DAYS
  5. XELJANZ XR [Suspect]
     Active Substance: TOFACITINIB CITRATE
     Dosage: 11 MG, 1X/DAY
     Route: 048
     Dates: start: 201901
  6. GABAPENTIN. [Concomitant]
     Active Substance: GABAPENTIN
     Dosage: UNK
  7. SIMVASTATIN. [Concomitant]
     Active Substance: SIMVASTATIN
     Dosage: UNK
  8. XELJANZ XR [Suspect]
     Active Substance: TOFACITINIB CITRATE
     Indication: RHEUMATOID ARTHRITIS
     Dosage: 11 MG, 1X/DAY
     Route: 048
     Dates: start: 201901
  9. PREDNISONE. [Concomitant]
     Active Substance: PREDNISONE
     Indication: GOUT
     Dosage: 30 MG FOR 4 DAYS, THEN 20 MG FOR 2 DAYS, THEN 10 MG FOR 2 DAYS
     Dates: start: 20190703

REACTIONS (2)
  - Product prescribing error [Unknown]
  - Bowel movement irregularity [Unknown]

NARRATIVE: CASE EVENT DATE: 2019
